FAERS Safety Report 21999335 (Version 1)
Quarter: 2023Q1

REPORT INFORMATION
  Report Type: Spontaneous
  Country: US (occurrence: US)
  Receive Date: 20230216
  Receipt Date: 20230216
  Transmission Date: 20230417
  Serious: No
  Sender: FDA-Public Use
  Company Number: US-SANOFI-01487761

PATIENT
  Age: 37 Year
  Sex: Male

DRUGS (1)
  1. DUPIXENT [Suspect]
     Active Substance: DUPILUMAB
     Indication: Eosinophilic oesophagitis
     Dosage: 300 MG, QW
     Dates: start: 202212

REACTIONS (7)
  - Injection site pain [Unknown]
  - Injection site mass [Unknown]
  - Injection site dryness [Unknown]
  - Skin exfoliation [Unknown]
  - Injection site erythema [Unknown]
  - Injection site swelling [Unknown]
  - Rash macular [Unknown]

NARRATIVE: CASE EVENT DATE: 20230208
